FAERS Safety Report 13579798 (Version 1)
Quarter: 2017Q2

REPORT INFORMATION
  Report Type: Spontaneous
  Country: US (occurrence: US)
  Receive Date: 20170525
  Receipt Date: 20170525
  Transmission Date: 20170830
  Serious: Yes (Other)
  Sender: FDA-Public Use
  Company Number: US-CLINIGEN GROUP PLC/ CLINIGEN HEALTHCARE LTD-E2B_00004583

PATIENT
  Age: 35 Year
  Sex: Male

DRUGS (7)
  1. FOSCARNET?SODIUM [Suspect]
     Active Substance: FOSCARNET SODIUM
     Route: 042
     Dates: start: 19921015, end: 19921022
  2. FOSCARNET?SODIUM [Suspect]
     Active Substance: FOSCARNET SODIUM
     Route: 042
     Dates: start: 19921023
  3. CLOFAZIMINE [Concomitant]
     Active Substance: CLOFAZIMINE
     Route: 065
  4. CLARITHROMYCIN. [Concomitant]
     Active Substance: CLARITHROMYCIN
     Route: 065
  5. DAPSONE. [Concomitant]
     Active Substance: DAPSONE
     Route: 065
  6. FOSCARNET?SODIUM [Suspect]
     Active Substance: FOSCARNET SODIUM
     Indication: CYTOMEGALOVIRUS INFECTION
     Route: 042
     Dates: start: 19920928, end: 19921014
  7. ETHAMBUTOL [Concomitant]
     Active Substance: ETHAMBUTOL HYDROCHLORIDE
     Route: 065

REACTIONS (8)
  - Blood creatinine increased [Not Recovered/Not Resolved]
  - Hypokalaemia [Not Recovered/Not Resolved]
  - Tremor [Not Recovered/Not Resolved]
  - Nausea [Not Recovered/Not Resolved]
  - Renal impairment [Not Recovered/Not Resolved]
  - Hypocalcaemia [Not Recovered/Not Resolved]
  - Decreased appetite [Not Recovered/Not Resolved]
  - Pyrexia [Not Recovered/Not Resolved]

NARRATIVE: CASE EVENT DATE: 19921021
